FAERS Safety Report 9399006 (Version 1)
Quarter: 2013Q3

REPORT INFORMATION
  Report Type: Spontaneous
  Country: US (occurrence: US)
  Receive Date: 20130714
  Receipt Date: 20130714
  Transmission Date: 20140515
  Serious: Yes (Other)
  Sender: FDA-Public Use
  Company Number: US-MYLANLABS-2013S1014469

PATIENT
  Age: 63 Year
  Sex: Female
  Weight: 158.76 kg

DRUGS (7)
  1. BUDESONIDE CAPSULES [Suspect]
     Indication: CROHN^S DISEASE
     Route: 048
     Dates: start: 20130530, end: 20130628
  2. LISINOPRIL [Concomitant]
  3. CYCLOBENZAPRINE [Concomitant]
  4. METFORMIN [Concomitant]
  5. CYMBALTA [Concomitant]
  6. LEVOTHYROXINE [Concomitant]
  7. OMEPRAZOLE [Concomitant]

REACTIONS (3)
  - Drug effect decreased [Recovering/Resolving]
  - Diarrhoea [Recovering/Resolving]
  - Dehydration [Recovering/Resolving]
